FAERS Safety Report 9139056 (Version 1)
Quarter: 2013Q1

REPORT INFORMATION
  Report Type: Spontaneous
  Country: US (occurrence: US)
  Receive Date: 20130305
  Receipt Date: 20130305
  Transmission Date: 20140127
  Serious: Yes (Other)
  Sender: FDA-Public Use
  Company Number: US-ENDO PHARMACEUTICALS INC.-PERC20100029

PATIENT
  Sex: Female
  Weight: 63.56 kg

DRUGS (6)
  1. PERCOCET [Suspect]
     Indication: ARTHRITIS
     Route: 048
     Dates: end: 200909
  2. LYRICA [Suspect]
     Indication: FIBROMYALGIA
     Route: 048
     Dates: end: 200909
  3. OXYCONTIN [Suspect]
     Indication: ARTHRITIS
     Route: 048
     Dates: end: 2009
  4. VIOXX [Concomitant]
     Indication: PRODUCT USED FOR UNKNOWN INDICATION
  5. TRAVATAN [Concomitant]
     Indication: EYE PAIN
  6. IMITREX [Concomitant]
     Indication: MIGRAINE

REACTIONS (9)
  - Fall [Unknown]
  - Cardiac disorder [Unknown]
  - Visual impairment [Unknown]
  - Vision blurred [Unknown]
  - Migraine [Unknown]
  - Cataract [Unknown]
  - Upper limb fracture [Unknown]
  - Eye pain [Unknown]
  - Dizziness [Unknown]
